FAERS Safety Report 7940890-9 (Version None)
Quarter: 2011Q4

REPORT INFORMATION
  Report Type: 
  Country: None (occurrence: None)
  Receive Date: 20111114
  Receipt Date: 20110715
  Transmission Date: 20120403
  Serious: Yes (Other)
  Sender: FDA-Public Use
  Company Number: 1000022212

PATIENT
  Age: 61 Year
  Sex: Female

DRUGS (1)
  1. SAVELLA [Suspect]
     Indication: MIGRAINE
     Dosage: 62.5 MG (62.5 MG,1 IN 1 D),ORAL
     Route: 048
     Dates: start: 20110101, end: 20110624

REACTIONS (1)
  - HYPERTENSION [None]
